FAERS Safety Report 9038584 (Version 1)
Quarter: 2013Q1

REPORT INFORMATION
  Report Type: Spontaneous
  Country: CN (occurrence: CN)
  Receive Date: 20130129
  Receipt Date: 20130129
  Transmission Date: 20140127
  Serious: Yes (Other)
  Sender: FDA-Public Use
  Company Number: PHHY2012CN125821

PATIENT
  Age: 26 Year
  Sex: Male
  Weight: 62 kg

DRUGS (1)
  1. SEBIVO [Suspect]
     Indication: CHRONIC HEPATITIS B
     Dosage: 600 MG, QD
     Route: 048
     Dates: start: 20080916, end: 20110120

REACTIONS (11)
  - Oliguria [Recovered/Resolved]
  - Blood uric acid increased [Recovered/Resolved]
  - Rhabdomyolysis [Recovered/Resolved]
  - Blood creatine phosphokinase increased [Recovered/Resolved]
  - Pain in extremity [Recovered/Resolved]
  - Gait disturbance [Recovered/Resolved]
  - Lactic acidosis [Recovered/Resolved]
  - Blood creatinine increased [Recovered/Resolved]
  - Proteinuria [Recovered/Resolved]
  - Occult blood [Recovered/Resolved]
  - Oedema peripheral [Recovered/Resolved]
